FAERS Safety Report 9093623 (Version 3)
Quarter: 2014Q1

REPORT INFORMATION
  Report Type: Report from Study
  Country: NZ (occurrence: NZ)
  Receive Date: 20130201
  Receipt Date: 20140321
  Transmission Date: 20141002
  Serious: Yes (Other)
  Sender: FDA-Public Use
  Company Number: NZ-ROCHE-1182838

PATIENT
  Sex: 0

DRUGS (5)
  1. PEG-INTERFERON ALFA 2A [Suspect]
     Indication: HEPATITIS C
     Dosage: FOR 4, 8, OR 12 WEEKS
     Route: 058
  2. PEG-INTERFERON ALFA 2A [Suspect]
     Indication: HEPATITIS C
  3. SOFOSBUVIR [Suspect]
     Indication: HEPATITIS C
     Dosage: FOR 12 WEEKS
     Route: 048
  4. SOFOSBUVIR [Suspect]
     Indication: HEPATITIS C
  5. RIBAVIRIN [Suspect]
     Indication: HEPATITIS C
     Dosage: BASED ON BODY WEIGHT PATIENTS LESS THA 75 KG RECEIVED 1000 MG/D, AND HEAVIER PATIENTS RECEIVED 1200
     Route: 048

REACTIONS (7)
  - Anaemia [Unknown]
  - Lymphopenia [Unknown]
  - Neutropenia [Unknown]
  - International normalised ratio increased [Unknown]
  - Alanine aminotransferase increased [Unknown]
  - Insomnia [Unknown]
  - Leukopenia [Unknown]
